FAERS Safety Report 9789270 (Version 1)
Quarter: 2013Q4

REPORT INFORMATION
  Report Type: Spontaneous
  Country: KP (occurrence: KP)
  Receive Date: 20131230
  Receipt Date: 20131230
  Transmission Date: 20140711
  Serious: Yes (Other)
  Sender: FDA-Public Use
  Company Number: KP-WATSON-2013-23934

PATIENT
  Sex: 0

DRUGS (2)
  1. AMLODIPINE (UNKNOWN) [Suspect]
     Indication: HYPERTENSION
     Dosage: 5 MG, DAILY
     Route: 064
  2. ATENOLOL (UNKNOWN) [Suspect]
     Indication: HYPERTENSION
     Dosage: 50 MG, DAILY
     Route: 064

REACTIONS (3)
  - Congenital gastric anomaly [Unknown]
  - Ascites [Unknown]
  - Foetal exposure during pregnancy [Unknown]
